FAERS Safety Report 13101495 (Version 1)
Quarter: 2017Q1

REPORT INFORMATION
  Report Type: Spontaneous
  Country: US (occurrence: US)
  Receive Date: 20170110
  Receipt Date: 20170110
  Transmission Date: 20170428
  Serious: Yes (Hospitalization)
  Sender: FDA-Public Use
  Company Number: None

PATIENT
  Age: 77 Year
  Sex: Male
  Weight: 123 kg

DRUGS (1)
  1. APIXABAN [Suspect]
     Active Substance: APIXABAN
     Indication: ATRIAL FIBRILLATION
     Route: 048
     Dates: start: 20160824, end: 20161122

REACTIONS (4)
  - Acute kidney injury [None]
  - Haemorrhagic anaemia [None]
  - Gastrointestinal haemorrhage [None]
  - Gastrointestinal arteriovenous malformation [None]

NARRATIVE: CASE EVENT DATE: 20161122
